FAERS Safety Report 19031334 (Version 1)
Quarter: 2021Q1

REPORT INFORMATION
  Report Type: Spontaneous
  Country: US (occurrence: US)
  Receive Date: 20210318
  Receipt Date: 20210318
  Transmission Date: 20210420
  Serious: Yes (Death)
  Sender: FDA-Public Use
  Company Number: None

PATIENT
  Age: 52 Year
  Sex: Male

DRUGS (1)
  1. EVEROLIMUS 5MG PAR [Suspect]
     Active Substance: EVEROLIMUS
     Indication: RENAL CANCER
     Route: 048
     Dates: start: 202101

REACTIONS (1)
  - Death [None]

NARRATIVE: CASE EVENT DATE: 20210310
